FAERS Safety Report 5898912-5 (Version None)
Quarter: 2008Q3

REPORT INFORMATION
  Report Type: 
  Country: None (occurrence: None)
  Receive Date: 20080925
  Receipt Date: 20080915
  Transmission Date: 20090109
  Serious: Yes (Other)
  Sender: FDA-Public Use
  Company Number: US-PFIZER INC-2008078756

PATIENT
  Age: 20 Year
  Sex: Male
  Weight: 79.8 kg

DRUGS (10)
  1. DIFLUCAN [Suspect]
     Indication: OESOPHAGEAL CANDIDIASIS
     Dates: start: 20060101
  2. PREDNISONE [Suspect]
  3. FLUCONAZOLE [Suspect]
     Indication: OESOPHAGEAL CANDIDIASIS
     Dates: start: 20080912
  4. CLOTRIMAZOLE [Suspect]
  5. FLOVENT [Concomitant]
  6. NEXIUM [Concomitant]
  7. ALLEGRA [Concomitant]
  8. MONTELUKAST SODIUM [Concomitant]
  9. DEPO-MEDROL [Concomitant]
  10. CORTICOSTEROIDS [Concomitant]

REACTIONS (4)
  - ACHLORHYDRIA [None]
  - FEELING ABNORMAL [None]
  - OESOPHAGEAL CANDIDIASIS [None]
  - PHARYNGITIS STREPTOCOCCAL [None]
